FAERS Safety Report 7683767-9 (Version None)
Quarter: 2011Q3

REPORT INFORMATION
  Report Type: 
  Country: None (occurrence: None)
  Receive Date: 20110810
  Receipt Date: 20110729
  Transmission Date: 20111222
  Serious: Yes (Disabling, Other)
  Sender: FDA-Public Use
  Company Number: GER/UKI/11/0018987

PATIENT
  Age: 60 Year
  Sex: Male
  Weight: 70 kg

DRUGS (5)
  1. FERROUS SULPHATE (FGERROUS SULFATE) [Concomitant]
  2. THIAMINE HCL [Concomitant]
  3. OMEPRAZOLE [Suspect]
     Indication: DYSPEPSIA
     Dosage: 20 MG, ORAL
     Route: 048
     Dates: start: 20030101, end: 20110525
  4. QUININE SULPHATE (QUININE SULPHATE) [Concomitant]
  5. VITAMIN B COMPLEX CAP [Concomitant]

REACTIONS (3)
  - HYPOCALCAEMIA [None]
  - GRAND MAL CONVULSION [None]
  - HYPOMAGNESAEMIA [None]
